FAERS Safety Report 14842912 (Version 1)
Quarter: 2018Q2

REPORT INFORMATION
  Report Type: Spontaneous
  Country: US (occurrence: US)
  Receive Date: 20180423
  Receipt Date: 20180423
  Transmission Date: 20180711
  Serious: Yes (Hospitalization)
  Sender: FDA-Public Use
  Company Number: None

PATIENT
  Age: 23 Year
  Sex: Male

DRUGS (1)
  1. CIPROFLOXIN [Suspect]
     Active Substance: CIPROFLOXACIN

REACTIONS (1)
  - Clostridium difficile infection [None]

NARRATIVE: CASE EVENT DATE: 20171116
